FAERS Safety Report 15419462 (Version 1)
Quarter: 2018Q4

REPORT INFORMATION
  Report Type: Spontaneous
  Country: US (occurrence: US)
  Receive Date: 20180924
  Receipt Date: 20180924
  Transmission Date: 20190204
  Serious: No
  Sender: FDA-Public Use
  Company Number: US-EX USA HOLDINGS-EXHL20180499

PATIENT
  Age: 28 Year
  Sex: Male

DRUGS (1)
  1. BENZNIDAZOLE. [Suspect]
     Active Substance: BENZNIDAZOLE
     Indication: PRODUCT USED FOR UNKNOWN INDICATION
     Dosage: 250 MG
     Route: 048
     Dates: start: 201805

REACTIONS (2)
  - Neuralgia [Not Recovered/Not Resolved]
  - Product administered to patient of inappropriate age [None]

NARRATIVE: CASE EVENT DATE: 201805
